FAERS Safety Report 11643725 (Version 1)
Quarter: 2015Q4

REPORT INFORMATION
  Report Type: Spontaneous
  Country: US (occurrence: None)
  Receive Date: 20151019
  Receipt Date: 20151019
  Transmission Date: 20160304
  Serious: Yes (Other)
  Sender: FDA-Public Use
  Company Number: None

PATIENT
  Age: 55 Year
  Sex: Female
  Weight: 77.11 kg

DRUGS (7)
  1. COUGH DROPS HALLS [Concomitant]
  2. LIDICANE OINTMENT [Concomitant]
  3. ALTENTONOL [Concomitant]
  4. SYSTANE (HYPROMELLOSE 2910 (4000 MPA.S)) [Suspect]
     Active Substance: HYPROMELLOSE 2910 (4000 MPA.S)
     Indication: DRY EYE
     Dates: start: 20141130, end: 20151014
  5. CELEBREX [Concomitant]
     Active Substance: CELECOXIB
  6. TRAMADOL. [Concomitant]
     Active Substance: TRAMADOL
  7. THERAFLU NOS [Concomitant]
     Active Substance: ACETAMINOPHEN AND OR DEXTROMETHORPHAN AND OR DIPHENHYDRAMINE AND OR GUAIFENESIN AND OR PHENYLEPHRINE AND OR PSEUDOEPHEDRINE

REACTIONS (4)
  - Ocular hyperaemia [None]
  - Product contamination microbial [None]
  - Eye irritation [None]
  - Eye discharge [None]

NARRATIVE: CASE EVENT DATE: 20151013
